FAERS Safety Report 17993770 (Version 1)
Quarter: 2020Q3

REPORT INFORMATION
  Report Type: Spontaneous
  Country: US (occurrence: US)
  Receive Date: 20200707
  Receipt Date: 20200707
  Transmission Date: 20201103
  Serious: Yes (Death)
  Sender: FDA-Public Use
  Company Number: None

PATIENT
  Age: 72 Year
  Sex: Male
  Weight: 92.2 kg

DRUGS (1)
  1. ELZONRIS [Suspect]
     Active Substance: TAGRAXOFUSP-ERZS
     Indication: BLASTIC PLASMACYTOID DENDRITIC CELL NEOPLASIA
     Route: 041
     Dates: start: 20200629, end: 20200703

REACTIONS (12)
  - Capillary leak syndrome [None]
  - Weight increased [None]
  - Blood sodium decreased [None]
  - Dizziness [None]
  - Liver function test increased [None]
  - Blood lactate dehydrogenase increased [None]
  - Confusional state [None]
  - Pain [None]
  - Hypotension [None]
  - Poor quality sleep [None]
  - Abdominal discomfort [None]
  - Metabolic disorder [None]

NARRATIVE: CASE EVENT DATE: 20200705
